FAERS Safety Report 6749939-2 (Version None)
Quarter: 2010Q2

REPORT INFORMATION
  Report Type: 
  Country: None (occurrence: None)
  Receive Date: 20100601
  Receipt Date: 20100517
  Transmission Date: 20101027
  Serious: Yes (Hospitalization)
  Sender: FDA-Public Use
  Company Number: US-JNJFOC-20100510989

PATIENT
  Age: 2 Year
  Sex: Male
  Weight: 10.43 kg

DRUGS (2)
  1. CHILDREN'S MOTRIN [Suspect]
     Route: 048
  2. CHILDREN'S MOTRIN [Suspect]
     Indication: PYREXIA
     Dosage: TEASPOON, 6-8 HOURS
     Route: 048

REACTIONS (4)
  - BACTERIAL INFECTION [None]
  - DRUG INEFFECTIVE [None]
  - KIDNEY INFECTION [None]
  - PRODUCT QUALITY ISSUE [None]
